FAERS Safety Report 8851195 (Version 1)
Quarter: 2012Q4

REPORT INFORMATION
  Report Type: 
  Country: US (occurrence: US)
  Receive Date: 20121019
  Receipt Date: 20121019
  Transmission Date: 20130627
  Serious: Yes (Other)
  Sender: FDA-Public Use
  Company Number: US-BRISTOL-MYERS SQUIBB COMPANY-16961187

PATIENT
  Weight: 84 kg

DRUGS (1)
  1. YERVOY [Suspect]
     Dosage: Strength:3mg/kg
2nd dose on 23Aug2012
     Dates: start: 20120802

REACTIONS (1)
  - Colitis [Recovered/Resolved]
